FAERS Safety Report 8522013 (Version 4)
Quarter: 2013Q1

REPORT INFORMATION
  Report Type: Report from Study
  Country: JP (occurrence: JP)
  Receive Date: 20120419
  Receipt Date: 20130219
  Transmission Date: 20140127
  Serious: Yes (Death, Other)
  Sender: FDA-Public Use
  Company Number: JP-ASTELLAS-2012US003989

PATIENT
  Age: 70 Year
  Sex: Male
  Weight: 56 kg

DRUGS (16)
  1. ERLOTINIB TABLET [Suspect]
     Indication: ADENOCARCINOMA PANCREAS
     Dosage: 100 MG, UID/QD
     Route: 048
     Dates: start: 20111128, end: 20111221
  2. ERLOTINIB TABLET [Suspect]
     Dosage: 100 MG, UID/QD
     Route: 048
     Dates: start: 20111227, end: 20120110
  3. ERLOTINIB TABLET [Suspect]
     Dosage: 100 MG, UID/QD
     Route: 048
     Dates: end: 20120229
  4. GEMCITABINE HYDROCHLORIDE [Suspect]
     Indication: ADENOCARCINOMA PANCREAS
     Dosage: 1000 MG/M2, WEEKLY 2 WEEKS ADMINISTRATION AND 1 WEEK REST
     Route: 041
     Dates: start: 20111128, end: 20111205
  5. GEMCITABINE HYDROCHLORIDE [Suspect]
     Dosage: 1000 MG/M2, WEEKLY
     Route: 041
     Dates: start: 20111219, end: 20111226
  6. GEMCITABINE HYDROCHLORIDE [Suspect]
     Dosage: 1000 MG/M2, UID/QD
     Route: 041
     Dates: start: 20120104, end: 20120104
  7. GEMCITABINE HYDROCHLORIDE [Suspect]
     Dosage: 1000 MG/M2, WEEKLY 3 WEEKS ADMINISTRATION AND 1 WEEK REST
     Route: 041
     Dates: start: 20120116, end: 20120130
  8. GEMCITABINE HYDROCHLORIDE [Suspect]
     Dosage: 1000 MG/M2, UID/QD
     Route: 041
     Dates: start: 20120213, end: 20120213
  9. OXYCONTIN [Suspect]
     Indication: PRODUCT USED FOR UNKNOWN INDICATION
     Dosage: 10 MG, TID
     Route: 048
  10. CRAVIT [Suspect]
     Indication: CHOLANGITIS
     Dosage: 500 MG, UID/QD
     Route: 048
     Dates: start: 20111211, end: 20111215
  11. LOXONIN [Concomitant]
     Indication: PRODUCT USED FOR UNKNOWN INDICATION
     Dosage: 180 MG, UID/QD
     Route: 048
  12. OPSO [Concomitant]
     Indication: PRODUCT USED FOR UNKNOWN INDICATION
     Dosage: 5 MG, PRN
     Route: 048
  13. TAKEPRON [Concomitant]
     Indication: PRODUCT USED FOR UNKNOWN INDICATION
     Dosage: 30 MG, UID/QD
     Route: 048
  14. BERIZYM [Concomitant]
     Indication: PRODUCT USED FOR UNKNOWN INDICATION
     Dosage: 3 G, UID/QD
     Route: 048
  15. MAGMITT [Concomitant]
     Indication: PRODUCT USED FOR UNKNOWN INDICATION
     Dosage: 990 MG, UID/QD
     Route: 048
  16. PURSENNID [Concomitant]
     Indication: PRODUCT USED FOR UNKNOWN INDICATION
     Dosage: 24 MG, PRN
     Route: 048

REACTIONS (11)
  - Cholangitis [Recovering/Resolving]
  - Interstitial lung disease [Recovering/Resolving]
  - Malignant neoplasm progression [Fatal]
  - Xeroderma [Recovered/Resolved]
  - Rash [Recovered/Resolved]
  - Stomatitis [Recovering/Resolving]
  - Alanine aminotransferase increased [Recovering/Resolving]
  - Alanine aminotransferase increased [Recovering/Resolving]
  - Aspartate aminotransferase increased [Recovering/Resolving]
  - Aspartate aminotransferase increased [Recovering/Resolving]
  - Constipation [Not Recovered/Not Resolved]
